FAERS Safety Report 10970621 (Version 1)
Quarter: 2015Q1

REPORT INFORMATION
  Report Type: Report from Study
  Country: US (occurrence: US)
  Receive Date: 20150331
  Receipt Date: 20150331
  Transmission Date: 20150721
  Serious: Yes (Hospitalization, Other)
  Sender: FDA-Public Use
  Company Number: US-ABBVIE-15P-163-1349861-00

PATIENT
  Age: 54 Year
  Sex: Female

DRUGS (1)
  1. HUMIRA [Suspect]
     Active Substance: ADALIMUMAB
     Indication: CROHN^S DISEASE
     Route: 065
     Dates: start: 20150110

REACTIONS (14)
  - Abdominal pain [Unknown]
  - Incorrect route of drug administration [Unknown]
  - Malaise [Unknown]
  - Drug dose omission [Not Recovered/Not Resolved]
  - Asthenia [Unknown]
  - Toothache [Not Recovered/Not Resolved]
  - Heart rate decreased [Unknown]
  - Constipation [Recovered/Resolved]
  - Injection site injury [Unknown]
  - Vomiting [Recovered/Resolved]
  - Tooth abscess [Unknown]
  - Anxiety [Recovered/Resolved]
  - Injection site pain [Recovering/Resolving]
  - Gastroenteritis [Unknown]

NARRATIVE: CASE EVENT DATE: 2015
